FAERS Safety Report 7334327-0 (Version None)
Quarter: 2011Q1

REPORT INFORMATION
  Report Type: 
  Country: None (occurrence: None)
  Receive Date: 20110307
  Receipt Date: 20110125
  Transmission Date: 20110831
  Serious: Yes (Death)
  Sender: FDA-Public Use
  Company Number: US-TYCO HEALTHCARE/MALLINCKRODT-T201100432

PATIENT
  Sex: Female

DRUGS (7)
  1. AMITRIPTYLINE [Suspect]
     Route: 048
  2. DIPHENHYDRAMINE [Suspect]
     Route: 048
  3. HYDROCODONE/ACETAMINOPHEN [Suspect]
     Route: 048
  4. PREDNISONE [Suspect]
     Route: 048
  5. FLUOXETINE [Suspect]
     Route: 048
  6. CLONAZEPAM [Suspect]
     Route: 048
  7. TRAZODONE [Suspect]
     Route: 048

REACTIONS (4)
  - RESPIRATORY ARREST [None]
  - COMPLETED SUICIDE [None]
  - CARDIO-RESPIRATORY ARREST [None]
  - CARDIAC ARREST [None]
